FAERS Safety Report 7407622-4 (Version None)
Quarter: 2011Q2

REPORT INFORMATION
  Report Type: 
  Country: None (occurrence: None)
  Receive Date: 20110405
  Receipt Date: 20110330
  Transmission Date: 20111010
  Serious: Yes (Death)
  Sender: FDA-Public Use
  Company Number: 2011SP014613

PATIENT
  Age: 53 Year
  Sex: Female

DRUGS (4)
  1. HEPARIN SODIUM [Suspect]
     Indication: PRODUCT USED FOR UNKNOWN INDICATION
  2. ASPIRIN [Concomitant]
  3. CLOPIDOGREL [Concomitant]
  4. LEPIRUDIN [Concomitant]

REACTIONS (7)
  - ANGINA UNSTABLE [None]
  - CEREBRAL HAEMORRHAGE [None]
  - SUBARACHNOID HAEMORRHAGE [None]
  - CORONARY ARTERY THROMBOSIS [None]
  - CORONARY OSTIAL STENOSIS [None]
  - HEPARIN-INDUCED THROMBOCYTOPENIA [None]
  - SUBDURAL HAEMORRHAGE [None]
